FAERS Safety Report 4606338-7 (Version None)
Quarter: 2005Q2

REPORT INFORMATION
  Report Type: 
  Country: None (occurrence: None)
  Receive Date: 20050223
  Receipt Date: 20041208
  Transmission Date: 20051028
  Serious: Yes (Hospitalization)
  Sender: FDA-Public Use
  Company Number: WAES 0412USA01025

PATIENT
  Age: 66 Year
  Sex: Female

DRUGS (4)
  1. ZOCOR [Suspect]
     Indication: HYPERCHOLESTEROLAEMIA
     Dosage: SEE IMAGE
     Route: 048
     Dates: end: 20040921
  2. . [Concomitant]
  3. RULID [Suspect]
     Dates: end: 20040921
  4. BLINDED THERAPY [Concomitant]

REACTIONS (1)
  - RHABDOMYOLYSIS [None]
